FAERS Safety Report 19888228 (Version 1)
Quarter: 2021Q3

REPORT INFORMATION
  Report Type: Spontaneous
  Country: US (occurrence: US)
  Receive Date: 20210927
  Receipt Date: 20210927
  Transmission Date: 20211014
  Serious: Yes (Hospitalization)
  Sender: FDA-Public Use
  Company Number: None

PATIENT
  Age: 14 Year
  Sex: Male

DRUGS (2)
  1. EPOGEN [Suspect]
     Active Substance: ERYTHROPOIETIN
     Indication: CHRONIC RESPIRATORY FAILURE
     Dosage: ?          OTHER FREQUENCY:3X PER WEEK;?
     Route: 058
     Dates: start: 20180821
  2. TOBRAMYCIN. [Concomitant]
     Active Substance: TOBRAMYCIN

REACTIONS (1)
  - Pneumothorax [None]

NARRATIVE: CASE EVENT DATE: 20210927
